FAERS Safety Report 21184267 (Version 1)
Quarter: 2022Q3

REPORT INFORMATION
  Report Type: Spontaneous
  Country: IN (occurrence: None)
  Receive Date: 20220808
  Receipt Date: 20220808
  Transmission Date: 20221026
  Serious: Yes (Life-Threatening, Hospitalization)
  Sender: FDA-Public Use
  Company Number: IN-MICRO LABS LIMITED-ML2022-03986

PATIENT
  Age: 7 Year
  Sex: Male

DRUGS (7)
  1. LEVETIRACETAM [Suspect]
     Active Substance: LEVETIRACETAM
     Indication: Seizure
     Route: 042
  2. CLOBAZAM [Suspect]
     Active Substance: CLOBAZAM
     Indication: Seizure
     Route: 042
  3. VALPROATE SODIUM [Suspect]
     Active Substance: VALPROATE SODIUM
     Indication: Seizure
     Route: 042
  4. PHENYTOIN [Suspect]
     Active Substance: PHENYTOIN
     Indication: Seizure
     Route: 042
  5. LACOSAMIDE [Suspect]
     Active Substance: LACOSAMIDE
     Indication: Seizure
     Route: 042
  6. OXCARBAZEPINE [Suspect]
     Active Substance: OXCARBAZEPINE
     Indication: Seizure
     Route: 042
  7. MIDAZOLAM [Suspect]
     Active Substance: MIDAZOLAM
     Indication: Seizure
     Dosage: OPTIMAL DOSAGES
     Route: 042

REACTIONS (1)
  - Epilepsy [Unknown]
